FAERS Safety Report 8856249 (Version 1)
Quarter: 2012Q4

REPORT INFORMATION
  Report Type: Spontaneous
  Country: GB (occurrence: None)
  Receive Date: 20121018
  Receipt Date: 20121018
  Transmission Date: 20130627
  Serious: Yes (Other)
  Sender: FDA-Public Use
  Company Number: GB-009783

PATIENT
  Age: 10 Year
  Sex: Female

DRUGS (1)
  1. ZOMACTON [Suspect]
     Indication: GROWTH HORMONE DEFICIENCY
     Route: 058

REACTIONS (3)
  - Pain in extremity [None]
  - Sensory loss [None]
  - Dizziness [None]
